FAERS Safety Report 19942652 (Version 1)
Quarter: 2021Q4

REPORT INFORMATION
  Report Type: Report from Study
  Country: DE (occurrence: DE)
  Receive Date: 20211012
  Receipt Date: 20211012
  Transmission Date: 20220303
  Serious: Yes (Other)
  Sender: FDA-Public Use
  Company Number: DE-NOVARTISPH-NVSC2021DE231382

PATIENT
  Sex: Female
  Weight: 106 kg

DRUGS (2)
  1. KISQALI [Suspect]
     Active Substance: RIBOCICLIB
     Indication: Breast cancer metastatic
     Dosage: 100 MG, QD
     Route: 048
     Dates: start: 20190104, end: 20190313
  2. LETROZOLE [Suspect]
     Active Substance: LETROZOLE
     Indication: Breast cancer metastatic
     Dosage: 2.5 MG, QD
     Route: 048
     Dates: start: 20190104, end: 20190313

REACTIONS (2)
  - Diabetes mellitus [Recovering/Resolving]
  - Anal abscess [Recovered/Resolved]

NARRATIVE: CASE EVENT DATE: 20190305
